FAERS Safety Report 15208461 (Version 1)
Quarter: 2018Q3

REPORT INFORMATION
  Report Type: Spontaneous
  Country: US (occurrence: US)
  Receive Date: 20180628
  Receipt Date: 20180628
  Transmission Date: 20181010
  Serious: Yes (Hospitalization)
  Sender: FDA-Public Use
  Company Number: None

PATIENT
  Age: 64 Year
  Sex: Female
  Weight: 65.4 kg

DRUGS (20)
  1. ASPIRIN. [Concomitant]
     Active Substance: ASPIRIN
  2. ATORVASTATIN [Concomitant]
     Active Substance: ATORVASTATIN
  3. OXYCODONE/ACETAMINOPHEN [Concomitant]
     Active Substance: ACETAMINOPHEN\OXYCODONE HYDROCHLORIDE
  4. BENZTROPINE. [Concomitant]
     Active Substance: BENZTROPINE
  5. BUMEX [Concomitant]
     Active Substance: BUMETANIDE
  6. CARVEDILOL. [Concomitant]
     Active Substance: CARVEDILOL
  7. HYDRALAZINE [Concomitant]
     Active Substance: HYDRALAZINE HYDROCHLORIDE
  8. INSULIN ASPART [Concomitant]
     Active Substance: INSULIN ASPART
  9. PANTOPRAZOLE [Concomitant]
     Active Substance: PANTOPRAZOLE
  10. INSULIN DETEMIR [Concomitant]
     Active Substance: INSULIN DETEMIR
  11. AMLODIPINE [Concomitant]
     Active Substance: AMLODIPINE BESYLATE
  12. AZITHROMYCIN ANHYDROUS. [Concomitant]
     Active Substance: AZITHROMYCIN ANHYDROUS
  13. DARBEPOETIN [Concomitant]
     Active Substance: DARBEPOETIN ALFA
  14. GABAPENTIN. [Concomitant]
     Active Substance: GABAPENTIN
  15. FLUEPHENAZINE [Concomitant]
  16. IRON [Concomitant]
     Active Substance: IRON
  17. ISOSORBIDE MONONITRATE. [Concomitant]
     Active Substance: ISOSORBIDE MONONITRATE
  18. MELATONIN [Concomitant]
     Active Substance: MELATONIN
  19. WARFARIN [Concomitant]
     Active Substance: WARFARIN
  20. QUETIAPINE. [Suspect]
     Active Substance: QUETIAPINE
     Indication: SCHIZOAFFECTIVE DISORDER
     Route: 048
     Dates: start: 20170111, end: 20180321

REACTIONS (2)
  - Electrocardiogram QT prolonged [None]
  - Confusional state [None]

NARRATIVE: CASE EVENT DATE: 20180321
